FAERS Safety Report 16957157 (Version 1)
Quarter: 2019Q4

REPORT INFORMATION
  Report Type: Spontaneous
  Country: DE (occurrence: DE)
  Receive Date: 20191024
  Receipt Date: 20191024
  Transmission Date: 20200122
  Serious: Yes (Hospitalization, Other)
  Sender: FDA-Public Use
  Company Number: DE-009507513-1908DEU010024

PATIENT
  Age: 35 Year
  Sex: Female

DRUGS (5)
  1. PUREGON (FOLLITROPIN BETA) [Suspect]
     Active Substance: FOLLITROPIN
     Indication: CONTROLLED OVARIAN STIMULATION
     Dosage: 200 IU, 1 TIME DAILY
     Route: 058
     Dates: start: 20190411, end: 20190420
  2. PROGESTERONE. [Suspect]
     Active Substance: PROGESTERONE
     Indication: ASSISTED REPRODUCTIVE TECHNOLOGY
     Dosage: 100 MG, 3 TIMES DAILY
     Route: 067
     Dates: start: 20190424, end: 20190507
  3. GONADOTROPIN, CHORIONIC [Suspect]
     Active Substance: CHORIOGONADOTROPIN ALFA
     Indication: ASSISTED FERTILISATION
     Dosage: 150 IU, ONCE/SINGLE
     Dates: start: 20190427, end: 20190427
  4. GONADOTROPIN, CHORIONIC [Suspect]
     Active Substance: CHORIOGONADOTROPIN ALFA
     Indication: OVULATION INDUCTION
     Dosage: 5000 IU, ONCE/SINGLE
     Route: 058
     Dates: start: 20190420, end: 20190420
  5. SYNARELA [Suspect]
     Active Substance: NAFARELIN ACETATE
     Indication: ASSISTED REPRODUCTIVE TECHNOLOGY
     Dosage: 0.4 MG, 1 TIME DAILY
     Route: 045
     Dates: start: 20190405, end: 20190420

REACTIONS (4)
  - Incorrect route of product administration [Unknown]
  - Product use in unapproved indication [Unknown]
  - Ovarian hyperstimulation syndrome [Recovered/Resolved]
  - Off label use [Unknown]

NARRATIVE: CASE EVENT DATE: 20190511
